FAERS Safety Report 20173523 (Version 1)
Quarter: 2021Q4

REPORT INFORMATION
  Report Type: Spontaneous
  Country: DE (occurrence: DE)
  Receive Date: 20211212
  Receipt Date: 20211212
  Transmission Date: 20220303
  Serious: Yes (Hospitalization)
  Sender: FDA-Public Use
  Company Number: None

PATIENT
  Age: 41 Year
  Sex: Male

DRUGS (1)
  1. TECFIDERA [Suspect]
     Active Substance: DIMETHYL FUMARATE
     Indication: Multiple sclerosis
     Dosage: DAILY DOSE: 480 MG MILLGRAM(S) EVERY DAYS 2 SEPARATED DOSES
     Route: 048
     Dates: start: 201801

REACTIONS (1)
  - Seminoma [Not Recovered/Not Resolved]

NARRATIVE: CASE EVENT DATE: 20201101
